FAERS Safety Report 5919671-3 (Version None)
Quarter: 2008Q4

REPORT INFORMATION
  Report Type: 
  Country: None (occurrence: None)
  Receive Date: 20081015
  Receipt Date: 20081008
  Transmission Date: 20090506
  Serious: Yes (Death)
  Sender: FDA-Public Use
  Company Number: JP-ABBOTT-08P-087-0479990-00

PATIENT
  Age: 70 Year
  Sex: Male
  Weight: 53 kg

DRUGS (14)
  1. LEUPROLIDE ACETATE [Suspect]
     Indication: PROSTATE CANCER STAGE IV
     Route: 058
     Dates: start: 20060516, end: 20070710
  2. LEUPROLIDE ACETATE [Suspect]
     Dates: start: 20060324, end: 20060421
  3. MORPHINE HCL ELIXIR [Concomitant]
     Indication: CANCER PAIN
     Route: 048
     Dates: start: 20060704, end: 20060808
  4. MORPHINE HCL ELIXIR [Concomitant]
     Dates: start: 20070515, end: 20070518
  5. BICALUTAMIDE [Concomitant]
     Indication: PROSTATE CANCER
     Route: 048
     Dates: end: 20060919
  6. ESTRAMUSTINE PHOSPHATE SODIUM [Concomitant]
     Indication: PROSTATE CANCER STAGE IV
     Route: 048
     Dates: start: 20061031, end: 20061211
  7. DEXAMETHASONE [Concomitant]
     Indication: PROSTATE CANCER STAGE IV
     Route: 048
     Dates: start: 20061212, end: 20070807
  8. FENTANYL [Concomitant]
     Indication: CANCER PAIN
     Route: 062
     Dates: end: 20060531
  9. FENTANYL [Concomitant]
     Route: 062
     Dates: start: 20061031, end: 20070122
  10. FENTANYL [Concomitant]
     Route: 062
     Dates: start: 20070515, end: 20070611
  11. FENTANYL [Concomitant]
     Route: 062
     Dates: start: 20070612, end: 20070731
  12. FENTANYL [Concomitant]
     Route: 062
     Dates: start: 20070801, end: 20071004
  13. DOMPERIDONE [Concomitant]
     Indication: PROPHYLAXIS OF NAUSEA AND VOMITING
     Route: 048
     Dates: start: 20061031, end: 20061211
  14. MORPHINE HCL ELIXIR [Concomitant]
     Route: 048
     Dates: start: 20070817, end: 20071004

REACTIONS (1)
  - PROSTATE CANCER [None]
